FAERS Safety Report 4809045-0 (Version None)
Quarter: 2005Q4

REPORT INFORMATION
  Report Type: 
  Country: None (occurrence: None)
  Receive Date: 20051021
  Receipt Date: 20051012
  Transmission Date: 20060501
  Serious: Yes (Hospitalization)
  Sender: FDA-Public Use
  Company Number: 163-20785-05060131

PATIENT
  Age: 63 Year
  Sex: Male

DRUGS (3)
  1. THALOMID [Suspect]
     Indication: MULTIPLE MYELOMA
     Dosage: SEE IMAGE
     Route: 048
     Dates: start: 20050321, end: 20050301
  2. THALOMID [Suspect]
     Indication: MULTIPLE MYELOMA
     Dosage: SEE IMAGE
     Route: 048
     Dates: start: 20050301, end: 20050401
  3. DECADRON [Suspect]
     Indication: MULTIPLE MYELOMA
     Dosage: PULSE DOSE, ORAL
     Route: 048

REACTIONS (5)
  - COMA [None]
  - MENINGITIS [None]
  - SEPTIC SHOCK [None]
  - SPINAL DISORDER [None]
  - TOXIC SHOCK SYNDROME [None]
